FAERS Safety Report 6030938-3 (Version None)
Quarter: 2009Q1

REPORT INFORMATION
  Report Type: 
  Country: None (occurrence: None)
  Receive Date: 20090106
  Receipt Date: 20081222
  Transmission Date: 20090719
  Serious: Yes (Hospitalization)
  Sender: FDA-Public Use
  Company Number: 2008002985

PATIENT
  Age: 42 Year
  Sex: Female
  Weight: 64 kg

DRUGS (3)
  1. ERLOTINIB (ERLOTINIB) (TABLET) (ERLOTINIB) [Suspect]
     Indication: NON-SMALL CELL LUNG CANCER
     Dosage: 150 MG, QD, ORAL
     Route: 048
     Dates: start: 20080821, end: 20081022
  2. SUNITINIB/PLACEBO [Suspect]
     Indication: NON-SMALL CELL LUNG CANCER
     Dosage: 37.5 MG, QD, ORAL
     Route: 048
     Dates: start: 20080821, end: 20081022
  3. SUNITINIB/PLACEBO [Suspect]

REACTIONS (2)
  - DISEASE PROGRESSION [None]
  - PANCREATITIS ACUTE [None]
